FAERS Safety Report 5909257-9 (Version None)
Quarter: 2008Q4

REPORT INFORMATION
  Report Type: 
  Country: None (occurrence: None)
  Receive Date: 20081006
  Receipt Date: 20080925
  Transmission Date: 20090506
  Serious: Yes (Other)
  Sender: FDA-Public Use
  Company Number: FR-PFIZER INC-2008067392

PATIENT
  Sex: Male

DRUGS (2)
  1. MISOPROSTOL [Suspect]
  2. SYNTOCINON [Concomitant]

REACTIONS (1)
  - CEREBRAL PALSY [None]
